FAERS Safety Report 8484328-4 (Version None)
Quarter: 2012Q3

REPORT INFORMATION
  Report Type: 
  Country: None (occurrence: None)
  Receive Date: 20120703
  Receipt Date: 20120625
  Transmission Date: 20120928
  Serious: Yes (Hospitalization, Other)
  Sender: FDA-Public Use
  Company Number: PHEH2012US008959

PATIENT
  Sex: Female

DRUGS (11)
  1. VITAMIN E [Concomitant]
     Dates: start: 20120417
  2. NIACIN [Concomitant]
     Dosage: 150 MG, BID
     Dates: start: 20120417
  3. TASIGNA [Suspect]
     Dosage: 200 MG, QD
     Route: 048
     Dates: start: 20100701
  4. TASIGNA [Suspect]
     Indication: CHRONIC MYELOID LEUKAEMIA
     Dosage: 300 MG, BID
     Route: 048
     Dates: start: 20100123
  5. LEVOTHYROXINE SODIUM [Concomitant]
     Indication: THYROID DISORDER
     Dosage: 75 MG, QD
     Dates: start: 20120417
  6. VITAMIN B NOS [Concomitant]
     Dates: start: 20120417
  7. CALCIUM [Concomitant]
     Dosage: 600 MG, BID
     Dates: start: 20120417
  8. TRIAMTERENE [Concomitant]
     Dosage: 37.5 MG, QD
     Dates: start: 20120417
  9. VITAMIN A [Concomitant]
     Dates: start: 20120417
  10. TASIGNA [Suspect]
     Dosage: 200 MG, BID
     Route: 048
  11. VERAPAMIL [Concomitant]
     Dosage: 240 MG, QD
     Dates: start: 20120417

REACTIONS (5)
  - BLOOD POTASSIUM DECREASED [None]
  - BONE MARROW FAILURE [None]
  - HEART RATE DECREASED [None]
  - ELECTROCARDIOGRAM QT PROLONGED [None]
  - PERIPHERAL VASCULAR DISORDER [None]
